FAERS Safety Report 13104031 (Version 1)
Quarter: 2017Q1

REPORT INFORMATION
  Report Type: Report from Study
  Country: FI (occurrence: FI)
  Receive Date: 20170111
  Receipt Date: 20170111
  Transmission Date: 20170428
  Serious: Yes (Congenital Anomaly)
  Sender: FDA-Public Use
  Company Number: PHHY2012FI085786

PATIENT

DRUGS (1)
  1. TEGRETOL [Suspect]
     Active Substance: CARBAMAZEPINE
     Indication: EPILEPSY
     Dosage: (MOTHER DAILY DOSE:300 MG DAILY)
     Route: 064

REACTIONS (3)
  - Acrochordon [Unknown]
  - Polydactyly [Unknown]
  - Foetal exposure during pregnancy [Unknown]
